FAERS Safety Report 23132397 (Version 1)
Quarter: 2023Q4

REPORT INFORMATION
  Report Type: Spontaneous
  Country: JP (occurrence: JP)
  Receive Date: 20231101
  Receipt Date: 20231101
  Transmission Date: 20240110
  Serious: Yes (Other)
  Sender: FDA-Public Use
  Company Number: JP-ORGANON-O2310JPN003502

PATIENT
  Age: 38 Year
  Sex: Male

DRUGS (3)
  1. PROPECIA [Suspect]
     Active Substance: FINASTERIDE
     Dosage: 1 MILLIGRAM
     Route: 048
  2. VALPROATE SODIUM [Concomitant]
     Active Substance: VALPROATE SODIUM
     Dosage: UNK
     Route: 048
  3. VIMPAT [Concomitant]
     Active Substance: LACOSAMIDE
     Dosage: UNK
     Route: 048

REACTIONS (2)
  - Epilepsy [Unknown]
  - Drug level decreased [Unknown]
